FAERS Safety Report 19123778 (Version 2)
Quarter: 2021Q2

REPORT INFORMATION
  Report Type: Report from Study
  Country: PK (occurrence: PK)
  Receive Date: 20210412
  Receipt Date: 20210429
  Transmission Date: 20210717
  Serious: Yes (Other)
  Sender: FDA-Public Use
  Company Number: NVSC2021PK078905

PATIENT
  Age: 55 Year
  Sex: Female

DRUGS (2)
  1. MYFORTIC [Suspect]
     Active Substance: MYCOPHENOLATE SODIUM
     Indication: INTERSTITIAL LUNG DISEASE
     Dosage: 360 MG, TID
     Route: 048
     Dates: start: 20190820, end: 202012
  2. MYFORTIC [Suspect]
     Active Substance: MYCOPHENOLATE SODIUM
     Dosage: 360 MG, BID
     Route: 048
     Dates: start: 202101

REACTIONS (5)
  - Chest pain [Unknown]
  - Obstructive airways disorder [Not Recovered/Not Resolved]
  - Hypotension [Unknown]
  - Product use in unapproved indication [Not Recovered/Not Resolved]
  - Oedema peripheral [Unknown]

NARRATIVE: CASE EVENT DATE: 20190820
